FAERS Safety Report 8450564-6 (Version None)
Quarter: 2012Q2

REPORT INFORMATION
  Report Type: 
  Country: None (occurrence: None)
  Receive Date: 20120620
  Receipt Date: 20120606
  Transmission Date: 20120825
  Serious: Yes (Death, Hospitalization, Other)
  Sender: FDA-Public Use
  Company Number: GB-RANBAXY-2012RR-56442

PATIENT
  Age: 43 Year
  Sex: Male

DRUGS (7)
  1. PREDNISOLONE [Suspect]
     Indication: IMMUNOSUPPRESSANT DRUG THERAPY
     Dosage: 60 MG, SINCE HOSPITAL DAY 17
     Route: 065
  2. CYCLOPHOSPHAMIDE [Suspect]
     Indication: IMMUNOSUPPRESSANT DRUG THERAPY
     Dosage: 100 MG, QD, SINCE HOSPITAL DAY 17
     Route: 048
     Dates: start: 20090101
  3. CLARITHROMYCIN [Suspect]
     Indication: MYCOBACTERIUM FORTUITUM INFECTION
     Dosage: 500 MG, BID, SINCE HOSPITAL DAY 42
     Route: 065
     Dates: start: 20090101
  4. CIPROFLOXACIN HYDROCHLORIDE [Suspect]
     Indication: MYCOBACTERIUM FORTUITUM INFECTION
     Dosage: 500 MG, BID, SINCE HOSPITAL DAY 42
     Route: 065
     Dates: start: 20090101
  5. CIPROFLOXACIN HYDROCHLORIDE [Suspect]
     Dosage: 500 MG, BID, SINCE HOSPITAL DAY 157
     Route: 065
     Dates: start: 20090101
  6. CLARITHROMYCIN [Suspect]
     Dosage: 500 MG, BID, SINCE HOSPITAL DAY 157
     Route: 065
     Dates: start: 20090101
  7. AMIKACIN [Concomitant]
     Indication: PRODUCT USED FOR UNKNOWN INDICATION
     Dosage: 300 MG, BID
     Route: 065

REACTIONS (9)
  - MYCOBACTERIUM FORTUITUM INFECTION [None]
  - H1N1 INFLUENZA [None]
  - BRONCHOPULMONARY ASPERGILLOSIS [None]
  - SEPSIS SYNDROME [None]
  - NEUTROPENIC SEPSIS [None]
  - RENAL FAILURE [None]
  - RESPIRATORY FAILURE [None]
  - LIVER INJURY [None]
  - CARDIAC FAILURE [None]
